FAERS Safety Report 4531668-7 (Version None)
Quarter: 2004Q4

REPORT INFORMATION
  Report Type: 
  Country: None (occurrence: None)
  Receive Date: 20041216
  Receipt Date: 20041206
  Transmission Date: 20050328
  Serious: Yes (Hospitalization)
  Sender: FDA-Public Use
  Company Number: 210484

PATIENT
  Age: 62 Year
  Sex: Female
  Weight: 72.6 kg

DRUGS (2)
  1. HERCEPTIN [Suspect]
     Indication: BREAST CANCER
     Dosage: 1/WEEK, INTRAVENOUS
     Route: 042
  2. TAXOTERE [Concomitant]

REACTIONS (8)
  - BACTERIAL INFECTION [None]
  - BREAST CANCER RECURRENT [None]
  - BRONCHOALVEOLAR LAVAGE ABNORMAL [None]
  - COMPUTERISED TOMOGRAM ABNORMAL [None]
  - CRYPTOGENIC ORGANIZING PNEUMONIA [None]
  - HAEMATOCRIT DECREASED [None]
  - HAEMOGLOBIN DECREASED [None]
  - PNEUMONITIS [None]
